FAERS Safety Report 10745761 (Version 2)
Quarter: 2015Q1

REPORT INFORMATION
  Report Type: Spontaneous
  Country: US (occurrence: US)
  Receive Date: 20150128
  Receipt Date: 20150204
  Transmission Date: 20150721
  Serious: Yes (Hospitalization)
  Sender: FDA-Public Use
  Company Number: US-ELI_LILLY_AND_COMPANY-US201501009410

PATIENT
  Sex: Male

DRUGS (5)
  1. SAW PALMETTO                       /00833501/ [Concomitant]
     Active Substance: SAW PALMETTO
  2. CIALIS [Suspect]
     Active Substance: TADALAFIL
     Indication: BENIGN PROSTATIC HYPERPLASIA
     Dosage: 5 MG, QD
     Route: 065
     Dates: start: 201101, end: 201407
  3. AVODART [Concomitant]
     Active Substance: DUTASTERIDE
  4. CIALIS [Suspect]
     Active Substance: TADALAFIL
     Indication: URINARY INCONTINENCE
  5. FLOMAX [Concomitant]
     Active Substance: TAMSULOSIN HYDROCHLORIDE

REACTIONS (3)
  - Staphylococcal infection [Unknown]
  - Accident at work [Unknown]
  - Nocturia [Unknown]
